FAERS Safety Report 8117239-4 (Version None)
Quarter: 2012Q1

REPORT INFORMATION
  Report Type: 
  Country: None (occurrence: None)
  Receive Date: 20120206
  Receipt Date: 20120203
  Transmission Date: 20120608
  Serious: No
  Sender: FDA-Public Use
  Company Number: US-PFIZER INC-2012030822

PATIENT
  Sex: Male
  Weight: 116.1 kg

DRUGS (11)
  1. DURAGESIC-100 [Concomitant]
     Dosage: 100 UG, UNK
  2. SULFASALAZINE [Concomitant]
     Dosage: 1000 MG, 2X/DAY
  3. LYRICA [Suspect]
     Indication: ARTHRITIS
     Dosage: 75 MG, 2X/DAY
     Route: 048
     Dates: start: 20100101
  4. DURAGESIC-100 [Concomitant]
     Dosage: 25 UG, UNK
  5. CLONAZEPAM [Concomitant]
     Indication: SLEEP DISORDER
     Dosage: 30 MG, 1X/DAY
  6. TRANXENE [Concomitant]
     Dosage: 75 MG, 3X/DAY
  7. PERCOCET [Concomitant]
     Indication: PAIN
     Dosage: UNK, AS NEEDED
  8. SINGULAIR [Concomitant]
     Indication: ASTHMA
     Dosage: 10 MG, 1X/DAY
  9. HUMIRA [Concomitant]
     Dosage: 40 MG, UNK
  10. ZANAFLEX [Concomitant]
     Dosage: 40 MG, 1X/DAY
  11. FLONASE [Concomitant]
     Dosage: UNK, 2X/DAY
     Route: 045

REACTIONS (2)
  - OROPHARYNGEAL PAIN [None]
  - INFLUENZA [None]
